FAERS Safety Report 7204756-4 (Version None)
Quarter: 2010Q4

REPORT INFORMATION
  Report Type: 
  Country: None (occurrence: None)
  Receive Date: 20101230
  Receipt Date: 20101122
  Transmission Date: 20110411
  Serious: No
  Sender: FDA-Public Use
  Company Number: US-PFIZER INC-2010155942

PATIENT
  Sex: Female
  Weight: 70.748 kg

DRUGS (3)
  1. LIPITOR [Suspect]
     Indication: BLOOD CHOLESTEROL INCREASED
     Dates: start: 20100501, end: 20100101
  2. OXYCONTIN [Concomitant]
     Indication: PAIN
     Dosage: UNK
  3. NEXIUM [Concomitant]
     Dosage: UNK

REACTIONS (4)
  - BACK PAIN [None]
  - BLOOD CHOLESTEROL INCREASED [None]
  - PAIN IN EXTREMITY [None]
  - WRONG TECHNIQUE IN DRUG USAGE PROCESS [None]
